FAERS Safety Report 17372179 (Version 2)
Quarter: 2020Q1

REPORT INFORMATION
  Report Type: Spontaneous
  Country: HR (occurrence: HR)
  Receive Date: 20200205
  Receipt Date: 20200224
  Transmission Date: 20200409
  Serious: Yes (Death, Hospitalization, Other)
  Sender: FDA-Public Use
  Company Number: HR-PFIZER INC-2020047316

PATIENT
  Age: 64 Year
  Sex: Female
  Weight: 67 kg

DRUGS (23)
  1. TARGINACT [Concomitant]
     Active Substance: NALOXONE HYDROCHLORIDE\OXYCODONE HYDROCHLORIDE
     Dosage: 5/ 2.5 MG 2 X 1 TABLET
  2. CONCOR [Concomitant]
     Active Substance: BISOPROLOL FUMARATE
     Dosage: 1.25 MILLIGRAM
  3. CYCLOPHOSPHAMIDE. [Concomitant]
     Active Substance: CYCLOPHOSPHAMIDE
     Indication: ADRENAL ADENOMA
     Dosage: UNK
     Dates: start: 20190314
  4. DEXAMETHASONE. [Concomitant]
     Active Substance: DEXAMETHASONE
     Indication: ADRENAL ADENOMA
  5. FILGRASTIM [Suspect]
     Active Substance: FILGRASTIM
     Indication: FEBRILE NEUTROPENIA
     Dosage: UNK
     Route: 065
     Dates: start: 201904
  6. KYPROLIS [Suspect]
     Active Substance: CARFILZOMIB
     Indication: ADRENAL ADENOMA
     Dosage: 70 MG/M2, UNK
     Dates: start: 20191224, end: 20191224
  7. THALIDOMIDE [Concomitant]
     Active Substance: THALIDOMIDE
     Indication: ADRENAL ADENOMA
     Dosage: UNK
     Dates: start: 201905
  8. LENALIDOMIDE [Concomitant]
     Active Substance: LENALIDOMIDE
     Indication: ADRENAL ADENOMA
     Dosage: UNK
     Dates: start: 20190807
  9. ADENURIC [Concomitant]
     Active Substance: FEBUXOSTAT
     Indication: NEPHROLITHIASIS
     Dosage: 80 MILLIGRAM
     Dates: start: 20191129, end: 20200125
  10. KYPROLIS [Suspect]
     Active Substance: CARFILZOMIB
     Indication: PLASMA CELL MYELOMA
     Dosage: 20 MG/M2, WEEKLY
     Route: 065
     Dates: start: 20191217
  11. CLEXANE [Concomitant]
     Active Substance: ENOXAPARIN SODIUM
     Dosage: 0.6 MILLILITER, QD
     Route: 058
  12. SORBISTERIT [Concomitant]
     Dosage: ONE DOSAGE PER DAY
  13. CONTROLOC [Concomitant]
     Active Substance: PANTOPRAZOLE SODIUM
     Dosage: 40 MILLIGRAM, QD
  14. DEXAMETHASONE. [Concomitant]
     Active Substance: DEXAMETHASONE
     Indication: PLASMA CELL MYELOMA
     Dosage: 80 MG, QWK
     Dates: start: 20190315, end: 20191224
  15. DARATUMUMAB [Concomitant]
     Active Substance: DARATUMUMAB
     Indication: ADRENAL ADENOMA
     Dosage: UNK
     Dates: start: 20190807
  16. PLIVIT D3 [Concomitant]
     Active Substance: CHOLECALCIFEROL
     Dosage: 6 DROPS
  17. PIPERACILLIN AND TAZOBACTAM [Concomitant]
     Active Substance: PIPERACILLIN SODIUM\TAZOBACTAM SODIUM
     Indication: ANTIBIOTIC THERAPY
     Dosage: UNK
     Dates: start: 2019, end: 2019
  18. BORTEZOMIB. [Concomitant]
     Active Substance: BORTEZOMIB
     Indication: ADRENAL ADENOMA
     Dosage: UNK
     Dates: start: 20190314, end: 20190722
  19. SODIUM HYDROGEN CARBONATE [Concomitant]
     Active Substance: SODIUM BICARBONATE
     Dosage: 2 X 1/4 TEA-SPOON
  20. PHYSIOTENS [Concomitant]
     Active Substance: MOXONIDINE
     Dosage: 0.2 MG IN THE MORNING + 0.4 MG IN THE EVENING
  21. CEPHALEXINE [Concomitant]
     Active Substance: CEPHALEXIN
     Indication: ANTIBIOTIC THERAPY
     Dosage: UNK
     Dates: start: 2019
  22. FOLACIN [FOLIC ACID] [Concomitant]
     Active Substance: FOLIC ACID
     Dosage: 5 MILLIGRAM
  23. VIROLEX [ACICLOVIR] [Concomitant]
     Dosage: 200 MILLIGRAM

REACTIONS (11)
  - Thrombotic thrombocytopenic purpura [Fatal]
  - Plasma cell leukaemia [Fatal]
  - Spinal fracture [Unknown]
  - Unresponsive to stimuli [Unknown]
  - Urinary tract infection pseudomonal [Fatal]
  - Protein total increased [Unknown]
  - Renal impairment [Fatal]
  - Light chain analysis increased [Unknown]
  - Disorientation [Unknown]
  - Blood pressure increased [Unknown]
  - Light chain analysis abnormal [Unknown]

NARRATIVE: CASE EVENT DATE: 2019
